FAERS Safety Report 15093861 (Version 2)
Quarter: 2019Q3

REPORT INFORMATION
  Report Type: Spontaneous
  Country: US (occurrence: US)
  Receive Date: 20180629
  Receipt Date: 20190909
  Transmission Date: 20191004
  Serious: No
  Sender: FDA-Public Use
  Company Number: US-ACTELION-A-NJ2018-174667

PATIENT
  Sex: Female
  Weight: 66.21 kg

DRUGS (1)
  1. OPSUMIT [Suspect]
     Active Substance: MACITENTAN
     Indication: PULMONARY ARTERIAL HYPERTENSION
     Dosage: 10 MG, QD
     Route: 048

REACTIONS (5)
  - Headache [Unknown]
  - Vomiting [Unknown]
  - Dizziness [Unknown]
  - Dry eye [Unknown]
  - Nausea [Unknown]
